FAERS Safety Report 12973327 (Version 1)
Quarter: 2016Q4

REPORT INFORMATION
  Report Type: Report from Study
  Country: None (occurrence: DE)
  Receive Date: 20161124
  Receipt Date: 20161124
  Transmission Date: 20170207
  Serious: Yes (Other)
  Sender: FDA-Public Use
  Company Number: DE-ABBVIE-16K-062-1786977-00

PATIENT
  Age: 50 Year
  Sex: Male

DRUGS (1)
  1. HUMIRA [Suspect]
     Active Substance: ADALIMUMAB
     Indication: COLITIS ULCERATIVE
     Route: 058
     Dates: start: 20151105

REACTIONS (2)
  - Blood glucose increased [Not Recovered/Not Resolved]
  - Blood glucose fluctuation [Not Recovered/Not Resolved]

NARRATIVE: CASE EVENT DATE: 201601
